FAERS Safety Report 10993387 (Version 1)
Quarter: 2015Q2

REPORT INFORMATION
  Report Type: Spontaneous
  Country: US (occurrence: None)
  Receive Date: 20150406
  Receipt Date: 20150406
  Transmission Date: 20150821
  Serious: Yes (Hospitalization, Other)
  Sender: FDA-Public Use
  Company Number: None

PATIENT
  Age: 82 Year
  Sex: Male

DRUGS (1)
  1. SUTENT [Suspect]
     Active Substance: SUNITINIB MALATE
     Indication: RENAL CANCER
     Route: 048

REACTIONS (4)
  - Hypoglycaemia [None]
  - Loss of consciousness [None]
  - Palmar-plantar erythrodysaesthesia syndrome [None]
  - Wound infection [None]

NARRATIVE: CASE EVENT DATE: 20150318
